FAERS Safety Report 15578244 (Version 1)
Quarter: 2018Q4

REPORT INFORMATION
  Report Type: Spontaneous
  Country: US (occurrence: US)
  Receive Date: 20181101
  Receipt Date: 20181101
  Transmission Date: 20190205
  Serious: Yes (Other)
  Sender: FDA-Public Use
  Company Number: None

PATIENT
  Age: 61 Year
  Sex: Male
  Weight: 83.25 kg

DRUGS (18)
  1. ASPIRIN. [Concomitant]
     Active Substance: ASPIRIN
  2. ROSUVASTATIN. [Concomitant]
     Active Substance: ROSUVASTATIN
  3. FOLIC ACID. [Concomitant]
     Active Substance: FOLIC ACID
  4. TAMSULOSIN [Concomitant]
     Active Substance: TAMSULOSIN
  5. VITAMINS [Concomitant]
     Active Substance: VITAMINS
  6. OLMESARTAN HCL [Suspect]
     Active Substance: HYDROCHLOROTHIAZIDE\OLMESARTAN MEDOXOMIL
     Indication: HYPERTENSION
     Dosage: ?          QUANTITY:1 TABLET(S);?
     Route: 048
  7. VITAMINS [Concomitant]
     Active Substance: VITAMINS
  8. AMLODIPINE [Concomitant]
     Active Substance: AMLODIPINE BESYLATE
  9. POTASSIUM [Concomitant]
     Active Substance: POTASSIUM
  10. ACETAMINOPHEN. [Concomitant]
     Active Substance: ACETAMINOPHEN
  11. FOLIC ACID. [Concomitant]
     Active Substance: FOLIC ACID
  12. MAGNESIUM [Concomitant]
     Active Substance: MAGNESIUM
  13. BYSTOLIC [Concomitant]
     Active Substance: NEBIVOLOL HYDROCHLORIDE
  14. TAMSULOSIN [Concomitant]
     Active Substance: TAMSULOSIN
  15. BYSTOLIC [Concomitant]
     Active Substance: NEBIVOLOL HYDROCHLORIDE
  16. ROSUVASTATIN. [Concomitant]
     Active Substance: ROSUVASTATIN
  17. POTASSIUM [Concomitant]
     Active Substance: POTASSIUM
  18. MAGNESIUM [Concomitant]
     Active Substance: MAGNESIUM

REACTIONS (2)
  - Non-small cell lung cancer [None]
  - Non-tobacco user [None]

NARRATIVE: CASE EVENT DATE: 20180815
